FAERS Safety Report 6533567-8 (Version None)
Quarter: 2010Q1

REPORT INFORMATION
  Report Type: 
  Country: None (occurrence: None)
  Receive Date: 20100108
  Receipt Date: 20100108
  Transmission Date: 20100710
  Serious: No
  Sender: FDA-Public Use
  Company Number: None

PATIENT
  Sex: Male

DRUGS (1)
  1. TRILEPTAL [Suspect]
     Indication: EPILEPSY
     Dosage: 900MG AM 1050 MG PM

REACTIONS (3)
  - ANXIETY [None]
  - DIZZINESS [None]
  - PRODUCT SUBSTITUTION ISSUE [None]
